FAERS Safety Report 12353108 (Version 1)
Quarter: 2016Q2

REPORT INFORMATION
  Report Type: Spontaneous
  Country: US (occurrence: US)
  Receive Date: 20160510
  Receipt Date: 20160510
  Transmission Date: 20160815
  Serious: No
  Sender: FDA-Public Use
  Company Number: US-ASTRAZENECA-2016SE28025

PATIENT
  Sex: Female

DRUGS (2)
  1. MULTIVITAMIN [Concomitant]
     Active Substance: VITAMINS
     Indication: SUPPLEMENTATION THERAPY
  2. RHINOCORT [Suspect]
     Active Substance: BUDESONIDE
     Indication: SINUS CONGESTION
     Dosage: ONE SPRAY DAILY
     Route: 045

REACTIONS (2)
  - Sinusitis [Recovered/Resolved]
  - Drug ineffective [Unknown]
